FAERS Safety Report 6932528-4 (Version None)
Quarter: 2010Q3

REPORT INFORMATION
  Report Type: 
  Country: None (occurrence: None)
  Receive Date: 20100819
  Receipt Date: 20100810
  Transmission Date: 20110219
  Serious: Yes (Other)
  Sender: FDA-Public Use
  Company Number: US-PFIZER INC-2009249557

PATIENT
  Sex: Male

DRUGS (1)
  1. GENOTROPIN [Suspect]
     Dosage: UNK

REACTIONS (3)
  - BLOOD GROWTH HORMONE INCREASED [None]
  - HAND-FOOT-AND-MOUTH DISEASE [None]
  - ONYCHOMADESIS [None]
